FAERS Safety Report 14855135 (Version 5)
Quarter: 2021Q1

REPORT INFORMATION
  Report Type: Other
  Country: JP (occurrence: JP)
  Receive Date: 20180507
  Receipt Date: 20210308
  Transmission Date: 20210419
  Serious: Yes (Death, Hospitalization)
  Sender: FDA-Public Use
  Company Number: JP-ROCHE-2102330

PATIENT
  Age: 64 Year
  Sex: Female
  Weight: 50 kg

DRUGS (8)
  1. ZETIA [Concomitant]
     Active Substance: EZETIMIBE
     Route: 048
     Dates: start: 20131101, end: 20180325
  2. LOXONIN [Concomitant]
     Active Substance: LOXOPROFEN SODIUM
     Dosage: PROPERLY
     Route: 061
     Dates: start: 20120914, end: 20180325
  3. PROGRAF [Suspect]
     Active Substance: TACROLIMUS
     Indication: PRODUCT USED FOR UNKNOWN INDICATION
     Dosage: LAST DOSE RECEIVED ON 25/MAR/2018
     Route: 048
     Dates: start: 20100122
  4. LOXONIN [Concomitant]
     Active Substance: LOXOPROFEN SODIUM
     Route: 048
     Dates: start: 20110729, end: 20180325
  5. ACTEMRA [Suspect]
     Active Substance: TOCILIZUMAB
     Indication: RHEUMATOID ARTHRITIS
     Dosage: LAST DOSE RECEIVED ON 16/MAR/2018
     Route: 041
     Dates: start: 20120210
  6. MUCOSTA [Concomitant]
     Active Substance: REBAMIPIDE
     Route: 048
     Dates: start: 20110729, end: 20180325
  7. PROGRAF [Suspect]
     Active Substance: TACROLIMUS
     Route: 065
  8. PROGRAF [Suspect]
     Active Substance: TACROLIMUS
     Route: 065

REACTIONS (11)
  - Myositis [Not Recovered/Not Resolved]
  - Necrotising fasciitis [Fatal]
  - Disseminated intravascular coagulation [Fatal]
  - Sepsis [Not Recovered/Not Resolved]
  - Multiple organ dysfunction syndrome [Fatal]
  - Toxic shock syndrome streptococcal [Fatal]
  - Severe invasive streptococcal infection [Fatal]
  - Septic shock [Fatal]
  - Shock haemorrhagic [Fatal]
  - Muscle haemorrhage [Not Recovered/Not Resolved]
  - Shock [Recovering/Resolving]

NARRATIVE: CASE EVENT DATE: 20180324
